FAERS Safety Report 8228567-6 (Version None)
Quarter: 2012Q1

REPORT INFORMATION
  Report Type: 
  Country: None (occurrence: None)
  Receive Date: 20120322
  Receipt Date: 20110406
  Transmission Date: 20120608
  Serious: Yes (Hospitalization)
  Sender: FDA-Public Use
  Company Number: US-BRISTOL-MYERS SQUIBB COMPANY-15657240

PATIENT
  Sex: Male

DRUGS (3)
  1. ERBITUX [Suspect]
  2. IRINOTECAN HCL [Suspect]
     Indication: COLORECTAL CANCER METASTATIC
  3. LAXATIVES [Suspect]

REACTIONS (1)
  - DIARRHOEA [None]
